FAERS Safety Report 19134591 (Version 1)
Quarter: 2021Q2

REPORT INFORMATION
  Report Type: Spontaneous
  Country: US (occurrence: US)
  Receive Date: 20210414
  Receipt Date: 20210414
  Transmission Date: 20210717
  Serious: Yes (Other)
  Sender: FDA-Public Use
  Company Number: US-SUN PHARMACEUTICAL INDUSTRIES LTD-2021R1-277362

PATIENT
  Age: 69 Year
  Sex: Female

DRUGS (1)
  1. AMIFOSTINE. [Suspect]
     Active Substance: AMIFOSTINE
     Indication: PRODUCT USED FOR UNKNOWN INDICATION
     Dosage: UNK
     Route: 065

REACTIONS (3)
  - Anaphylactic reaction [Unknown]
  - Eye swelling [Unknown]
  - Swollen tongue [Unknown]
